FAERS Safety Report 24309716 (Version 2)
Quarter: 2024Q3

REPORT INFORMATION
  Report Type: Spontaneous
  Country: CA (occurrence: CA)
  Receive Date: 20240912
  Receipt Date: 20240916
  Transmission Date: 20241016
  Serious: Yes (Hospitalization, Other)
  Sender: CELLTRION
  Company Number: CA-PFIZER INC-202400250464

PATIENT

DRUGS (4)
  1. INFLECTRA [Suspect]
     Active Substance: INFLIXIMAB-DYYB
     Indication: Crohn^s disease
     Dosage: 1 DF, 800 MG FIRST DOSE THEN 400 MG; INDUCTION WEEKS 0, 2, 6 MAINTENANCE Q 8 WEEKS
     Dates: start: 20240708
  2. CALCIUM [Concomitant]
     Active Substance: CALCIUM
     Dosage: 500 MG
  3. PREDNISONE [Concomitant]
     Active Substance: PREDNISONE
     Dosage: 35 MG
  4. CHOLECALCIFEROL [Concomitant]
     Active Substance: CHOLECALCIFEROL
     Dosage: 400 IU

REACTIONS (2)
  - Tooth abscess [Not Recovered/Not Resolved]
  - Abscess drainage [Not Recovered/Not Resolved]

NARRATIVE: CASE EVENT DATE: 20240101
